FAERS Safety Report 19090764 (Version 5)
Quarter: 2022Q3

REPORT INFORMATION
  Report Type: Spontaneous
  Country: JP (occurrence: JP)
  Receive Date: 20210405
  Receipt Date: 20220701
  Transmission Date: 20221027
  Serious: Yes (Hospitalization, Other)
  Sender: FDA-Public Use
  Company Number: JP-ONO-2019JP019347

PATIENT
  Age: 66 Year
  Sex: Female
  Weight: 52.9 kg

DRUGS (36)
  1. PARSABIV [Suspect]
     Active Substance: ETELCALCETIDE HYDROCHLORIDE
     Indication: Hyperparathyroidism secondary
     Dosage: 5 MILLIGRAM, 3 TIMES/WK
     Route: 010
     Dates: start: 20181210, end: 20181217
  2. PARSABIV [Suspect]
     Active Substance: ETELCALCETIDE HYDROCHLORIDE
     Dosage: 2.5 MILLIGRAM, 3 TIMES/WK
     Route: 010
     Dates: start: 20181219, end: 20190206
  3. PARSABIV [Suspect]
     Active Substance: ETELCALCETIDE HYDROCHLORIDE
     Dosage: 2.5 MILLIGRAM, 2 TIMES/WK
     Route: 010
     Dates: start: 20190211, end: 20190909
  4. PARSABIV [Suspect]
     Active Substance: ETELCALCETIDE HYDROCHLORIDE
     Dosage: 2.5 MILLIGRAM, 2 TIMES/WK
     Route: 010
     Dates: start: 20190913, end: 20210311
  5. PARSABIV [Suspect]
     Active Substance: ETELCALCETIDE HYDROCHLORIDE
     Dosage: 2.5 MILLIGRAM, QWK
     Route: 041
     Dates: start: 20210329, end: 20210510
  6. PARSABIV [Suspect]
     Active Substance: ETELCALCETIDE HYDROCHLORIDE
     Dosage: 2.5 MILLIGRAM, 2 TIMES/WK
     Route: 041
     Dates: start: 20210514, end: 20220613
  7. PARSABIV [Suspect]
     Active Substance: ETELCALCETIDE HYDROCHLORIDE
     Dosage: 2.5 MILLIGRAM, QWK
     Route: 041
     Dates: start: 20220617
  8. DARBEPOETIN ALFA [Concomitant]
     Active Substance: DARBEPOETIN ALFA
     Dosage: 15 UG, QW
     Route: 065
     Dates: end: 20190114
  9. DARBEPOETIN ALFA [Concomitant]
     Active Substance: DARBEPOETIN ALFA
     Dosage: 10 UG, QW
     Route: 065
     Dates: start: 20190121, end: 20190225
  10. DARBEPOETIN ALFA [Concomitant]
     Active Substance: DARBEPOETIN ALFA
     Dosage: 5 UG, QW
     Route: 065
     Dates: start: 20190304, end: 20190422
  11. DARBEPOETIN ALFA [Concomitant]
     Active Substance: DARBEPOETIN ALFA
     Dosage: 10 UG, QW
     Route: 065
     Dates: start: 20190429, end: 20190527
  12. DARBEPOETIN ALFA [Concomitant]
     Active Substance: DARBEPOETIN ALFA
     Dosage: 15 UG, QW
     Route: 065
     Dates: start: 20190603, end: 20190812
  13. OXAROL [Concomitant]
     Active Substance: MAXACALCITOL
     Dosage: 2.5 MICROGRAM, 2 TIMES/WK
     Route: 065
     Dates: end: 20181210
  14. OXAROL [Concomitant]
     Active Substance: MAXACALCITOL
     Dosage: 2.5 MICROGRAM, 3 TIMES/WK
     Route: 065
     Dates: start: 20181214, end: 20190107
  15. OXAROL [Concomitant]
     Active Substance: MAXACALCITOL
     Dosage: 5 MICROGRAM, QWK
     Route: 065
     Dates: start: 20190109, end: 20200429
  16. OXAROL [Concomitant]
     Active Substance: MAXACALCITOL
     Dosage: 2.5 MICROGRAM, 2 TIMES/WK
     Route: 065
     Dates: start: 20190511, end: 20200504
  17. OXAROL [Concomitant]
     Active Substance: MAXACALCITOL
     Dosage: 2.5 MICROGRAM, 3 TIMES/WK
     Route: 065
     Dates: start: 20200506, end: 20210121
  18. OXAROL [Concomitant]
     Active Substance: MAXACALCITOL
     Dosage: 2.5 UG, Q56H
     Route: 065
     Dates: start: 20211018, end: 20220509
  19. OXAROL [Concomitant]
     Active Substance: MAXACALCITOL
     Dosage: 2.5 UG, Q84H
     Route: 065
     Dates: start: 20220513
  20. SUCROFERRIC OXYHYDROXIDE [Concomitant]
     Active Substance: SUCROFERRIC OXYHYDROXIDE
     Dosage: 750 MILLIGRAM, QD
     Route: 065
  21. DARBEPOETIN ALFA BIOSIMILAR 1 [Concomitant]
     Dosage: 15 UG, QW
     Route: 065
     Dates: start: 20190819, end: 20190826
  22. DARBEPOETIN ALFA BIOSIMILAR 1 [Concomitant]
     Dosage: 10 UG, QW
     Route: 065
     Dates: start: 20190902, end: 20190923
  23. DARBEPOETIN ALFA BIOSIMILAR 1 [Concomitant]
     Dosage: 5 UG, QW
     Route: 065
     Dates: start: 20190930, end: 20191028
  24. DARBEPOETIN ALFA BIOSIMILAR 1 [Concomitant]
     Dosage: 10 UG, QW
     Route: 065
     Dates: start: 20191104, end: 20200427
  25. DARBEPOETIN ALFA BIOSIMILAR 1 [Concomitant]
     Dosage: 5 UG, QW
     Route: 065
     Dates: start: 20200504, end: 20200525
  26. DARBEPOETIN ALFA BIOSIMILAR 1 [Concomitant]
     Dosage: 10 UG, QW
     Route: 065
     Dates: start: 20200601, end: 20201012
  27. DARBEPOETIN ALFA BIOSIMILAR 1 [Concomitant]
     Dosage: 15 UG, QW
     Route: 065
     Dates: start: 20201019, end: 20210118
  28. DARBEPOETIN ALFA BIOSIMILAR 1 [Concomitant]
     Dosage: 10 UG, QW
     Route: 065
     Dates: start: 20210317, end: 20210426
  29. DARBEPOETIN ALFA BIOSIMILAR 1 [Concomitant]
     Dosage: 15 UG, QW
     Route: 065
     Dates: start: 20210503, end: 20210823
  30. DARBEPOETIN ALFA BIOSIMILAR 1 [Concomitant]
     Dosage: 10 UG, QW
     Route: 065
     Dates: start: 20210830, end: 20211213
  31. DARBEPOETIN ALFA BIOSIMILAR 1 [Concomitant]
     Dosage: 15 UG, QW
     Route: 065
     Dates: start: 20211220, end: 20220221
  32. DARBEPOETIN ALFA BIOSIMILAR 1 [Concomitant]
     Dosage: 10 UG, QW
     Route: 065
     Dates: start: 20220228, end: 20220328
  33. DARBEPOETIN ALFA BIOSIMILAR 1 [Concomitant]
     Dosage: 5 UG, QW
     Route: 065
     Dates: start: 20220404, end: 20220509
  34. DARBEPOETIN ALFA BIOSIMILAR 1 [Concomitant]
     Dosage: 10 UG, QW
     Route: 065
     Dates: start: 20220516, end: 20220613
  35. DARBEPOETIN ALFA BIOSIMILAR 1 [Concomitant]
     Dosage: 15 UG, QW
     Route: 065
     Dates: start: 20220620
  36. ALFAROL [Concomitant]
     Active Substance: ALFACALCIDOL
     Dosage: 0.25 UG, EVERYDAY
     Route: 065
     Dates: start: 20210312, end: 20211017

REACTIONS (7)
  - Fractured sacrum [Recovered/Resolved]
  - Pelvic fracture [Recovered/Resolved]
  - Blood parathyroid hormone decreased [Unknown]
  - Migraine [Recovered/Resolved]
  - Upper respiratory tract inflammation [Recovered/Resolved]
  - Upper respiratory tract inflammation [Recovered/Resolved]
  - Tinea pedis [Recovering/Resolving]

NARRATIVE: CASE EVENT DATE: 20181210
